FAERS Safety Report 8836563 (Version 2)
Quarter: 2013Q1

REPORT INFORMATION
  Report Type: Spontaneous
  Country: US (occurrence: None)
  Receive Date: 20121009
  Receipt Date: 20130329
  Transmission Date: 20140127
  Serious: Yes (Hospitalization)
  Sender: FDA-Public Use
  Company Number: ACO_32258_2012

PATIENT
  Age: 49 Year
  Sex: Female
  Weight: 68 kg

DRUGS (6)
  1. AMPYRA [Suspect]
     Indication: GAIT DISTURBANCE
     Route: 048
     Dates: start: 201208, end: 20120907
  2. AMPYRA [Suspect]
     Indication: MUSCULAR WEAKNESS
     Route: 048
     Dates: start: 201208, end: 20120907
  3. MULTIVITAMIN [Concomitant]
  4. VITAMIN B12 [Concomitant]
  5. VITAMIN D3 [Concomitant]
  6. COLACE (DOCUSATE SODIUM) [Concomitant]

REACTIONS (3)
  - Staphylococcal infection [None]
  - Urinary tract infection [None]
  - Mass [None]
